FAERS Safety Report 8557537-3 (Version None)
Quarter: 2012Q3

REPORT INFORMATION
  Report Type: 
  Country: None (occurrence: None)
  Receive Date: 20120801
  Receipt Date: 20120725
  Transmission Date: 20120928
  Serious: Yes (Other)
  Sender: FDA-Public Use
  Company Number: GB-PFIZER INC-2012103402

PATIENT
  Age: 38 Year
  Sex: Female
  Weight: 100 kg

DRUGS (5)
  1. SERTRALINE HYDROCHLORIDE [Suspect]
     Indication: DEPRESSION
     Dosage: 100 MG, 1X/DAY
     Route: 048
     Dates: start: 20100101
  2. LITHIUM [Concomitant]
  3. RISPERIDONE [Concomitant]
     Dosage: 1.5 MG, 2X/DAY
     Route: 048
  4. PROCYCLIDINE [Concomitant]
     Dosage: 5 MG, 2X/DAY
  5. SERTRALINE HYDROCHLORIDE [Suspect]
     Indication: BIPOLAR DISORDER

REACTIONS (4)
  - SKIN EXFOLIATION [None]
  - TOXIC EPIDERMAL NECROLYSIS [None]
  - NAIL DISORDER [None]
  - RASH [None]
